FAERS Safety Report 25178300 (Version 1)
Quarter: 2025Q2

REPORT INFORMATION
  Report Type: Report from Study
  Country: CA (occurrence: CA)
  Receive Date: 20250409
  Receipt Date: 20250409
  Transmission Date: 20250717
  Serious: Yes (Other)
  Sender: TAKEDA
  Company Number: CA-TAKEDA-2025TUS034295

PATIENT
  Sex: Male

DRUGS (5)
  1. VEDOLIZUMAB [Suspect]
     Active Substance: VEDOLIZUMAB
     Indication: Colitis ulcerative
     Dates: start: 20190220, end: 20250227
  2. ASPIRIN [Concomitant]
     Active Substance: ASPIRIN
  3. FLONASE [Concomitant]
     Active Substance: FLUTICASONE PROPIONATE
  4. DEXAMETHASONE [Concomitant]
     Active Substance: DEXAMETHASONE
  5. TOBRAMYCIN [Concomitant]
     Active Substance: TOBRAMYCIN

REACTIONS (2)
  - Crohn^s disease [Not Recovered/Not Resolved]
  - Intestinal stenosis [Not Recovered/Not Resolved]
